FAERS Safety Report 4899862-3 (Version None)
Quarter: 2006Q1

REPORT INFORMATION
  Report Type: 
  Country: None (occurrence: None)
  Receive Date: 20060118
  Receipt Date: 20050718
  Transmission Date: 20060701
  Serious: No
  Sender: FDA-Public Use
  Company Number: 2005001393

PATIENT
  Age: 41 Year
  Sex: Male
  Weight: 77.1115 kg

DRUGS (5)
  1. TARCEVA [Suspect]
     Indication: NON-SMALL CELL LUNG CANCER
     Dosage: 150 MG (QD), ORAL
     Route: 048
     Dates: start: 20050715
  2. MORPHINE [Concomitant]
  3. NEURONTIN [Concomitant]
  4. FLEXERIL [Concomitant]
  5. VICODIN [Concomitant]

REACTIONS (5)
  - BURNING SENSATION [None]
  - CHEILITIS [None]
  - ORAL DISCOMFORT [None]
  - RASH [None]
  - STOMATITIS [None]
